FAERS Safety Report 6385381-4 (Version None)
Quarter: 2009Q4

REPORT INFORMATION
  Report Type: 
  Country: None (occurrence: None)
  Receive Date: 20091002
  Receipt Date: 20080925
  Transmission Date: 20100525
  Serious: No
  Sender: FDA-Public Use
  Company Number: US-ASTRAZENECA-2008UW18483

PATIENT
  Age: 72 Year
  Sex: Female

DRUGS (5)
  1. ARIMIDEX [Suspect]
     Route: 048
     Dates: start: 20070601
  2. INSULIN [Concomitant]
  3. AVAPRO [Concomitant]
  4. TRICOR [Concomitant]
  5. FOLIC ACID [Concomitant]

REACTIONS (3)
  - ARTHRALGIA [None]
  - HOT FLUSH [None]
  - TOOTHACHE [None]
